FAERS Safety Report 6154099-5 (Version None)
Quarter: 2009Q2

REPORT INFORMATION
  Report Type: 
  Country: None (occurrence: None)
  Receive Date: 20090414
  Receipt Date: 20090410
  Transmission Date: 20091009
  Serious: Yes (Death)
  Sender: FDA-Public Use
  Company Number: IT-ROCHE-625610

PATIENT
  Sex: Female

DRUGS (8)
  1. ROCEPHIN [Suspect]
     Indication: BRONCHOPNEUMOPATHY
     Route: 030
     Dates: start: 20090326, end: 20090328
  2. WARFARIN SODIUM [Concomitant]
     Indication: DRUG USE FOR UNKNOWN INDICATION
     Route: 048
  3. PANTOPAN [Concomitant]
     Route: 048
  4. CALCITRIOLO [Concomitant]
     Dosage: DRUG NAME REPORTED AS CALCITRIOLO TEVA.
     Route: 048
  5. ALIFLUS [Concomitant]
     Route: 055
  6. FUROSEMIDE [Concomitant]
     Route: 048
  7. ATENOLOLO [Concomitant]
     Route: 048
  8. ALLOPURINOL [Concomitant]
     Dosage: DRUG REPORTED AS ALLOPURINOLO TEVA.
     Route: 048

REACTIONS (2)
  - ASTHENIA [None]
  - DYSPNOEA [None]
